FAERS Safety Report 13577157 (Version 1)
Quarter: 2017Q2

REPORT INFORMATION
  Report Type: Spontaneous
  Country: LT (occurrence: LT)
  Receive Date: 20170524
  Receipt Date: 20170524
  Transmission Date: 20170830
  Serious: Yes (Life-Threatening, Hospitalization, Other)
  Sender: FDA-Public Use
  Company Number: LT-ALKEM LABORATORIES LIMITED-LT-ALKEM-2017-00254

PATIENT
  Age: 30 Year
  Sex: Female

DRUGS (4)
  1. LAMOTRIGINE. [Suspect]
     Active Substance: LAMOTRIGINE
     Indication: EPILEPSY
     Dosage: UNKNOWN
  2. VALPROIC ACID. [Suspect]
     Active Substance: VALPROIC ACID
     Indication: EPILEPSY
     Dosage: UNKNOWN
  3. VALPROIC ACID. [Suspect]
     Active Substance: VALPROIC ACID
     Indication: SUICIDE ATTEMPT
     Dosage: 40-45 MG
  4. LAMOTRIGINE. [Suspect]
     Active Substance: LAMOTRIGINE
     Indication: SUICIDE ATTEMPT
     Dosage: ~700 MG

REACTIONS (2)
  - Hypocalcaemia [Unknown]
  - Vitamin D deficiency [Unknown]
